FAERS Safety Report 8172954 (Version 4)
Quarter: 2018Q4

REPORT INFORMATION
  Report Type: Spontaneous
  Country: JP (occurrence: JP)
  Receive Date: 20111007
  Receipt Date: 20181031
  Transmission Date: 20190205
  Serious: Yes (Hospitalization)
  Sender: FDA-Public Use
  Company Number: PHHY2011JP88192

PATIENT
  Age: 84 Year
  Sex: Female

DRUGS (7)
  1. ZOMETA [Suspect]
     Active Substance: ZOLEDRONIC ACID
     Indication: METASTASES TO BONE
     Dosage: 4 MG, QMO
     Route: 041
     Dates: start: 20080425, end: 20100604
  2. SAWACILLIN [Concomitant]
     Active Substance: AMOXICILLIN
     Indication: PRODUCT USED FOR UNKNOWN INDICATION
     Dosage: 750 MG, UNK
     Route: 048
     Dates: start: 20101022
  3. LOXONIN [Concomitant]
     Active Substance: LOXOPROFEN SODIUM
     Indication: PRODUCT USED FOR UNKNOWN INDICATION
     Dosage: 120 MG, UNK
     Route: 048
  4. ROCEPHIN [Concomitant]
     Active Substance: CEFTRIAXONE SODIUM
     Indication: PRODUCT USED FOR UNKNOWN INDICATION
     Dosage: 1 G, UNK
     Route: 042
     Dates: start: 20100908, end: 20100909
  5. FEMARA [Suspect]
     Active Substance: LETROZOLE
     Indication: BREAST CANCER
     Dosage: 2.5 MG, QD
     Route: 048
     Dates: start: 20080408, end: 20100712
  6. MEIACT [Concomitant]
     Active Substance: CEFDITOREN PIVOXIL
     Indication: PRODUCT USED FOR UNKNOWN INDICATION
     Dosage: 300 UG, UNK
     Route: 048
     Dates: start: 20100910, end: 20100912
  7. FARESTON [Concomitant]
     Active Substance: TOREMIFENE CITRATE
     Indication: PRODUCT USED FOR UNKNOWN INDICATION
     Dosage: 120 MG, UNK
     Route: 048
     Dates: start: 20100713

REACTIONS (12)
  - Stomatitis [Unknown]
  - Osteomyelitis [Not Recovered/Not Resolved]
  - Mouth ulceration [Unknown]
  - Exposed bone in jaw [Unknown]
  - Periodontitis [Unknown]
  - Tooth infection [Unknown]
  - Eating disorder [Unknown]
  - Osteonecrosis of jaw [Not Recovered/Not Resolved]
  - Impaired healing [Unknown]
  - Bone lesion [Unknown]
  - Bone fistula [Unknown]
  - Weight decreased [Unknown]

NARRATIVE: CASE EVENT DATE: 20100622
